FAERS Safety Report 23404846 (Version 1)
Quarter: 2024Q1

REPORT INFORMATION
  Report Type: Spontaneous
  Country: US (occurrence: US)
  Receive Date: 20240116
  Receipt Date: 20240116
  Transmission Date: 20240409
  Serious: Yes (Hospitalization)
  Sender: FDA-Public Use
  Company Number: US-GTI-000098

PATIENT
  Age: 17 Year
  Sex: Female

DRUGS (3)
  1. PREDNISONE [Suspect]
     Active Substance: PREDNISONE
     Indication: Focal segmental glomerulosclerosis
     Route: 065
  2. TACROLIMUS [Suspect]
     Active Substance: TACROLIMUS
     Indication: Focal segmental glomerulosclerosis
     Route: 065
  3. EVEROLIMUS [Suspect]
     Active Substance: EVEROLIMUS
     Indication: Focal segmental glomerulosclerosis
     Route: 065

REACTIONS (11)
  - Adenovirus infection [Recovered/Resolved]
  - Hypotension [Unknown]
  - Blood creatinine increased [Recovered/Resolved]
  - Urinary tract infection [Unknown]
  - Adenovirus interstitial nephritis [Recovered/Resolved]
  - Anaemia [Unknown]
  - Myelosuppression [Unknown]
  - Hypoxia [Unknown]
  - Pleural effusion [Unknown]
  - Dysuria [Unknown]
  - Transaminases increased [Recovered/Resolved]
